FAERS Safety Report 5605111-0 (Version None)
Quarter: 2008Q1

REPORT INFORMATION
  Report Type: 
  Country: None (occurrence: None)
  Receive Date: 20080128
  Receipt Date: 20080117
  Transmission Date: 20080703
  Serious: Yes (Hospitalization, Other)
  Sender: FDA-Public Use
  Company Number: JP-PFIZER INC-2007107919

PATIENT
  Sex: Male

DRUGS (3)
  1. ZOLOFT [Suspect]
     Route: 048
  2. ACTOS [Concomitant]
  3. LIPIDIL [Concomitant]

REACTIONS (1)
  - LIVER DISORDER [None]
